FAERS Safety Report 10396315 (Version 1)
Quarter: 2014Q1

REPORT INFORMATION
  Report Type: Spontaneous
  Country: US (occurrence: None)
  Receive Date: 20130815
  Receipt Date: 20130815
  Transmission Date: 20141002
  Serious: Yes (Other)
  Sender: FDA-Public Use
  Company Number: ADR-2013-00232

PATIENT
  Age: 62 Year
  Sex: Female

DRUGS (4)
  1. BACLOFEN INTRATHECAL [Suspect]
     Indication: SPINAL PAIN
  2. CLONIDINE [Concomitant]
  3. ROPIVACAINE (NAROPIN) [Concomitant]
  4. SUFENTANIL INTRATHECAL [Concomitant]

REACTIONS (3)
  - Therapeutic response decreased [None]
  - Pain [None]
  - Underdose [None]
